FAERS Safety Report 9245104 (Version 2)
Quarter: 2013Q2

REPORT INFORMATION
  Report Type: Spontaneous
  Country: TW (occurrence: TW)
  Receive Date: 20130422
  Receipt Date: 20130429
  Transmission Date: 20140414
  Serious: Yes (Other)
  Sender: FDA-Public Use
  Company Number: TW-PFIZER INC-2013121531

PATIENT
  Age: 50 Year
  Sex: Male

DRUGS (3)
  1. INSPRA [Suspect]
     Indication: VENTRICULAR HYPERTROPHY
     Dosage: 1 DF, 1X/DAY
     Route: 048
     Dates: start: 2012
  2. DILATREND [Suspect]
     Indication: VENTRICULAR HYPERTROPHY
     Dosage: 6.25 MG, 2X/DAY
     Route: 048
     Dates: start: 2012, end: 201304
  3. LASIX [Concomitant]
     Indication: VENTRICULAR HYPERTROPHY
     Dosage: UNKNOWN DOSE, 1X/DAY
     Route: 048
     Dates: start: 2012

REACTIONS (1)
  - Wound haemorrhage [Recovered/Resolved]
